FAERS Safety Report 12375116 (Version 1)
Quarter: 2016Q2

REPORT INFORMATION
  Report Type: Spontaneous
  Country: US (occurrence: US)
  Receive Date: 20160517
  Receipt Date: 20160517
  Transmission Date: 20160815
  Serious: Yes (Other)
  Sender: FDA-Public Use
  Company Number: US-LUPIN PHARMACEUTICALS INC.-E2B_00005419

PATIENT
  Sex: Male
  Weight: 72.64 kg

DRUGS (2)
  1. LISINOPRIL TABLETS USP 10MG [Suspect]
     Active Substance: LISINOPRIL
     Route: 048
     Dates: end: 20160315
  2. LISINOPRIL TABLETS USP 10MG [Suspect]
     Active Substance: LISINOPRIL
     Indication: CARDIAC DISORDER
     Route: 048
     Dates: start: 201602

REACTIONS (3)
  - Dizziness [Recovered/Resolved]
  - Nephropathy [Not Recovered/Not Resolved]
  - Hypotension [Recovered/Resolved]
